FAERS Safety Report 18241854 (Version 1)
Quarter: 2020Q3

REPORT INFORMATION
  Report Type: Spontaneous
  Country: US (occurrence: US)
  Receive Date: 20200905
  Receipt Date: 20200905
  Transmission Date: 20201103
  Serious: Yes (Death)
  Sender: FDA-Public Use
  Company Number: None

PATIENT
  Age: 74 Year
  Sex: Male

DRUGS (1)
  1. REVLIMID [Suspect]
     Active Substance: LENALIDOMIDE
     Indication: PLASMA CELL MYELOMA
     Route: 048
     Dates: start: 20160511, end: 20160626

REACTIONS (8)
  - Neutropenia [None]
  - Pneumonia [None]
  - Pancytopenia [None]
  - Acute kidney injury [None]
  - Adrenocortical insufficiency acute [None]
  - Metabolic acidosis [None]
  - Acute respiratory failure [None]
  - Septic shock [None]

NARRATIVE: CASE EVENT DATE: 20160626
